FAERS Safety Report 25879528 (Version 1)
Quarter: 2025Q4

REPORT INFORMATION
  Report Type: Spontaneous
  Country: US (occurrence: None)
  Receive Date: 20251003
  Receipt Date: 20251003
  Transmission Date: 20260117
  Serious: No
  Sender: ALKERMES
  Company Number: US-ALKERMES INC.-ALK-2025-002621

PATIENT
  Age: 60 Year
  Sex: Female
  Weight: 86.168 kg

DRUGS (5)
  1. VIVITROL [Suspect]
     Active Substance: NALTREXONE
     Indication: Alcoholism
     Dosage: 380 MILLIGRAM, QMO
  2. VIVITROL [Suspect]
     Active Substance: NALTREXONE
     Dosage: 380 MILLIGRAM, QMO
  3. GABAPENTIN [Concomitant]
     Active Substance: GABAPENTIN
     Indication: Product used for unknown indication
     Dosage: UNK
     Route: 065
  4. TRAZODONE [Concomitant]
     Active Substance: TRAZODONE HYDROCHLORIDE
     Indication: Sleep disorder
     Dosage: UNK, PRN
     Route: 065
  5. PRAZOSIN [Concomitant]
     Active Substance: PRAZOSIN
     Indication: Hypertension
     Dosage: UNK
     Route: 065

REACTIONS (10)
  - Amnesia [Unknown]
  - Wheezing [Unknown]
  - Cough [Unknown]
  - Injection site pruritus [Unknown]
  - Injection site mass [Not Recovered/Not Resolved]
  - Injection site induration [Unknown]
  - Injection site haemorrhage [Unknown]
  - Malaise [Unknown]
  - Influenza like illness [Unknown]
  - Alcoholism [Unknown]

NARRATIVE: CASE EVENT DATE: 20241101
